FAERS Safety Report 12795228 (Version 2)
Quarter: 2016Q4

REPORT INFORMATION
  Report Type: Spontaneous
  Country: US (occurrence: US)
  Receive Date: 20160929
  Receipt Date: 20161013
  Transmission Date: 20170207
  Serious: Yes (Other)
  Sender: FDA-Public Use
  Company Number: US-PFIZER INC-2016453356

PATIENT
  Age: 59 Year
  Sex: Female
  Weight: 71 kg

DRUGS (4)
  1. CALCIUM [Concomitant]
     Active Substance: CALCIUM
     Indication: ANAEMIA
     Dosage: UNK
  2. LYRICA [Suspect]
     Active Substance: PREGABALIN
     Indication: NEURALGIA
     Dosage: 50 MG, 3X/DAY
     Route: 048
  3. MULTIVITAMINS [Concomitant]
     Active Substance: VITAMINS
     Indication: ANAEMIA
  4. VITAMIN C [Concomitant]
     Active Substance: ASCORBIC ACID
     Indication: ANAEMIA
     Dosage: UNK

REACTIONS (4)
  - Speech disorder [Unknown]
  - Pneumonia [Not Recovered/Not Resolved]
  - Pain [Unknown]
  - Dyspnoea [Unknown]
